FAERS Safety Report 14154207 (Version 5)
Quarter: 2018Q3

REPORT INFORMATION
  Report Type: Report from Study
  Country: FI (occurrence: FI)
  Receive Date: 20171102
  Receipt Date: 20180712
  Transmission Date: 20181010
  Serious: Yes (Death, Hospitalization)
  Sender: FDA-Public Use
  Company Number: US-ASTRAZENECA-2017SF04770

PATIENT
  Age: 59 Year
  Sex: Male
  Weight: 52.6 kg

DRUGS (38)
  1. LYRICA [Concomitant]
     Active Substance: PREGABALIN
     Indication: BONE PAIN
     Route: 048
     Dates: start: 20170306
  2. CALCICHEW D3 FORTE LEMON [Concomitant]
     Indication: MINERAL SUPPLEMENTATION
     Route: 048
     Dates: start: 20160526
  3. SOMAC [Concomitant]
     Active Substance: PANTOPRAZOLE SODIUM
     Indication: DYSPEPSIA
     Route: 048
     Dates: start: 20160526
  4. SILDENAFIL. [Concomitant]
     Active Substance: SILDENAFIL
     Indication: PRODUCT USED FOR UNKNOWN INDICATION
     Dosage: 1 TABLET (MAX. 2 TABLETS/DAY)
     Route: 048
  5. COTRIM FORTE [Concomitant]
     Active Substance: SULFAMETHOXAZOLE\TRIMETHOPRIM
     Indication: INFECTION PROPHYLAXIS
     Dosage: 160/80 MG
     Route: 065
     Dates: start: 20161010, end: 20170915
  6. PANADOL FORTE [Concomitant]
     Indication: PAIN IN EXTREMITY
     Route: 048
     Dates: start: 20161114
  7. MELATONIN [Concomitant]
     Active Substance: MELATONIN
     Indication: INSOMNIA
     Route: 048
     Dates: start: 20160816
  8. ASA [Concomitant]
     Active Substance: ASPIRIN
     Indication: PROPHYLAXIS
     Route: 065
     Dates: start: 20170503, end: 20170913
  9. ALLOPURINOL. [Concomitant]
     Active Substance: ALLOPURINOL
     Indication: PRODUCT USED FOR UNKNOWN INDICATION
     Route: 048
  10. INFANRIX?POLIO+HIB [Concomitant]
     Indication: PRODUCT USED FOR UNKNOWN INDICATION
     Route: 030
     Dates: start: 20170831
  11. MEDI4736 [Suspect]
     Active Substance: DURVALUMAB
     Indication: PLASMA CELL MYELOMA
     Route: 041
     Dates: start: 20170206, end: 20170206
  12. ZOMETA [Concomitant]
     Active Substance: ZOLEDRONIC ACID
     Indication: PROPHYLAXIS
     Route: 041
     Dates: start: 20170729
  13. OXYNORM [Concomitant]
     Active Substance: OXYCODONE HYDROCHLORIDE
     Indication: PRODUCT USED FOR UNKNOWN INDICATION
     Dosage: (MAX. 120 MG/DAY)
     Route: 048
     Dates: start: 20161128
  14. ZOPICLONE [Concomitant]
     Active Substance: ZOPICLONE
     Indication: PROPHYLAXIS
     Dosage: 7.5 MG
     Route: 065
     Dates: start: 20160905
  15. PANADOL FORTE [Concomitant]
     Indication: PAIN
     Route: 048
     Dates: start: 20161114
  16. LEVOLAC [Concomitant]
     Active Substance: LACTULOSE
     Indication: CONSTIPATION
     Dosage: 670 MG/ML
     Route: 048
     Dates: start: 20160627
  17. MACROGOL 4000 [Concomitant]
     Active Substance: POLYETHYLENE GLYCOL 4000
     Indication: CONSTIPATION
     Dosage: 1?2 DOSE BAGS (MAX. 3 DOSE BAGS/DAY)
     Route: 048
     Dates: start: 20161128
  18. MEDI4736 [Suspect]
     Active Substance: DURVALUMAB
     Indication: PLASMA CELL MYELOMA
     Route: 041
     Dates: start: 20170905, end: 20170905
  19. CC?5013 [Suspect]
     Active Substance: LENALIDOMIDE
     Indication: PLASMA CELL MYELOMA
     Route: 048
     Dates: start: 20170905, end: 20170905
  20. BETOLVEX [Concomitant]
     Active Substance: CYANOCOBALAMIN
     Indication: SUPPLEMENTATION THERAPY
     Route: 048
     Dates: start: 20170403
  21. MATRIFEN [Concomitant]
     Active Substance: FENTANYL
     Indication: PRODUCT USED FOR UNKNOWN INDICATION
     Route: 062
  22. PANADOL FORTE [Concomitant]
     Indication: PAIN IN EXTREMITY
     Route: 048
     Dates: start: 20160607
  23. PANADOL FORTE [Concomitant]
     Indication: PAIN
     Route: 048
     Dates: start: 20160607
  24. CALCICHEW D3 FORTE LEMON [Concomitant]
     Indication: VITAMIN SUPPLEMENTATION
     Route: 048
     Dates: start: 20160526
  25. IMOVANE [Concomitant]
     Active Substance: ZOPICLONE
     Indication: PRODUCT USED FOR UNKNOWN INDICATION
     Dosage: (MAX. 7.5. MG/DAY)
     Route: 048
  26. FENTANYL CITRATE. [Concomitant]
     Active Substance: FENTANYL CITRATE
     Indication: PAIN IN EXTREMITY
     Dosage: 112.5 UG/H
     Route: 065
     Dates: start: 20170421
  27. ACICLOVIR [Concomitant]
     Active Substance: ACYCLOVIR
     Indication: INFECTION PROPHYLAXIS
     Route: 065
     Dates: start: 20171013, end: 20171016
  28. DIAPAM [Concomitant]
     Indication: PRODUCT USED FOR UNKNOWN INDICATION
     Route: 048
  29. LORAZEPAM. [Concomitant]
     Active Substance: LORAZEPAM
     Indication: ANXIETY
     Dosage: MAX. 3 MG/DAY
     Route: 048
     Dates: start: 20160905
  30. ERTAPENEM. [Concomitant]
     Active Substance: ERTAPENEM SODIUM
     Indication: PYREXIA
     Route: 065
     Dates: start: 20171009, end: 20171010
  31. EMGESAN [Concomitant]
     Active Substance: MAGNESIUM HYDROXIDE
     Indication: HYPOMAGNESAEMIA
     Route: 048
     Dates: start: 20161128
  32. COTRIM FORTE [Concomitant]
     Active Substance: SULFAMETHOXAZOLE\TRIMETHOPRIM
     Indication: INFECTION PROPHYLAXIS
     Dosage: 160/80 MG
     Route: 065
     Dates: start: 20161013, end: 20161016
  33. MYKUNDEX [Concomitant]
     Indication: OROPHARYNGEAL CANDIDIASIS
     Route: 065
     Dates: start: 20170917, end: 20171010
  34. CEFALEXIN [Concomitant]
     Active Substance: CEPHALEXIN
     Indication: PYREXIA
     Route: 065
     Dates: start: 20171018, end: 20171022
  35. PREVNAR 13 [Concomitant]
     Active Substance: PNEUMOCOCCAL 13-VALENT CONJUGATE VACCINE
     Indication: PRODUCT USED FOR UNKNOWN INDICATION
     Route: 030
     Dates: start: 20170831
  36. CC?5013 [Suspect]
     Active Substance: LENALIDOMIDE
     Indication: PLASMA CELL MYELOMA
     Route: 048
     Dates: start: 20170206, end: 20170226
  37. ONDANSETRON [Concomitant]
     Active Substance: ONDANSETRON
     Indication: NAUSEA
     Dosage: (MAX. 16 MG/DAY)
     Route: 048
  38. DOXYCYCLINE. [Concomitant]
     Active Substance: DOXYCYCLINE
     Indication: PYREXIA
     Route: 065
     Dates: start: 20170927, end: 20171003

REACTIONS (2)
  - Pyrexia [Recovered/Resolved]
  - Cytokine release syndrome [Fatal]

NARRATIVE: CASE EVENT DATE: 20171004
